FAERS Safety Report 19151546 (Version 2)
Quarter: 2023Q2

REPORT INFORMATION
  Report Type: Spontaneous
  Country: US (occurrence: US)
  Receive Date: 20210419
  Receipt Date: 20230515
  Transmission Date: 20230722
  Serious: No
  Sender: FDA-Public Use
  Company Number: US-UCBSA-2020041808

PATIENT
  Sex: Male
  Weight: 77.56 kg

DRUGS (9)
  1. NEUPRO [Suspect]
     Active Substance: ROTIGOTINE
     Indication: Parkinson^s disease
     Dosage: 4 MILLIGRAM, ONCE DAILY (QD)
     Route: 062
     Dates: start: 2020, end: 202010
  2. NEUPRO [Suspect]
     Active Substance: ROTIGOTINE
     Indication: Restless legs syndrome
  3. RYTARY [Concomitant]
     Active Substance: CARBIDOPA\LEVODOPA
     Indication: Parkinson^s disease
     Dosage: 435 MILLIGRAM, 3X/DAY (TID)
     Dates: start: 20200926, end: 202010
  4. RYTARY [Concomitant]
     Active Substance: CARBIDOPA\LEVODOPA
     Indication: Restless legs syndrome
  5. RASAGILINE [Concomitant]
     Active Substance: RASAGILINE
     Indication: Parkinson^s disease
     Dosage: 1 MILLIGRAM, ONCE DAILY (QD)
     Dates: start: 20200926, end: 202010
  6. RASAGILINE [Concomitant]
     Active Substance: RASAGILINE
     Indication: Restless legs syndrome
  7. ATENOLOL [Concomitant]
     Active Substance: ATENOLOL
     Indication: Heart rate irregular
     Dosage: 25 MILLIGRAM, 2X/DAY (BID)
     Dates: start: 2000
  8. ATORVASTATIN [Concomitant]
     Active Substance: ATORVASTATIN
     Indication: Blood cholesterol increased
     Dosage: 40 MILLIGRAM, ONCE DAILY (QD)
  9. ASPIRIN [Concomitant]
     Active Substance: ASPIRIN
     Indication: Cardiac disorder
     Dosage: 81 MILLIGRAM, ONCE DAILY (QD)
     Dates: start: 2005

REACTIONS (5)
  - Product adhesion issue [Unknown]
  - Application site rash [Unknown]
  - Application site irritation [Unknown]
  - Dry mouth [Unknown]
  - Overdose [Unknown]

NARRATIVE: CASE EVENT DATE: 20200101
